FAERS Safety Report 10780324 (Version 3)
Quarter: 2015Q2

REPORT INFORMATION
  Report Type: Spontaneous
  Country: US (occurrence: US)
  Receive Date: 20150210
  Receipt Date: 20150417
  Transmission Date: 20150821
  Serious: No
  Sender: FDA-Public Use
  Company Number: US-GLAXOSMITHKLINE-A1069164A

PATIENT

DRUGS (4)
  1. XELODA [Concomitant]
     Active Substance: CAPECITABINE
  2. TYKERB [Suspect]
     Active Substance: LAPATINIB DITOSYLATE
     Indication: BREAST CANCER
     Dosage: 250 MG AT 6 TABLETS (1500 MG) DAILY; REDUCED TO 5 TABLETS (1250 MG) DAILY TEMPORARILY
  3. TYKERB [Suspect]
     Active Substance: LAPATINIB DITOSYLATE
     Dosage: 1500 MG, QD
     Route: 048
     Dates: start: 20131220, end: 20150416
  4. MORPHINE SULFATE CR [Concomitant]

REACTIONS (2)
  - Disease progression [Unknown]
  - Diarrhoea [Unknown]

NARRATIVE: CASE EVENT DATE: 2015
